FAERS Safety Report 22209722 (Version 2)
Quarter: 2025Q4

REPORT INFORMATION
  Report Type: Spontaneous
  Country: CA (occurrence: CA)
  Receive Date: 20230414
  Receipt Date: 20251003
  Transmission Date: 20260117
  Serious: Yes (Death, Life-Threatening, Hospitalization, Other)
  Sender: Kenvue
  Company Number: CA-JNJFOC-20230407502

PATIENT

DRUGS (6)
  1. ACETAMINOPHEN [Suspect]
     Active Substance: ACETAMINOPHEN
     Indication: Product used for unknown indication
     Dosage: 50 GRAM
     Route: 048
  2. ACETAMINOPHEN [Suspect]
     Active Substance: ACETAMINOPHEN
     Indication: Product used for unknown indication
     Dosage: 50 GRAM
     Route: 048
  3. GABAPENTIN [Suspect]
     Active Substance: GABAPENTIN
     Indication: Product used for unknown indication
     Dosage: 25.5 GRAM
     Route: 048
  4. MORPHINE [Suspect]
     Active Substance: MORPHINE
     Indication: Product used for unknown indication
     Dosage: 60 MILLIGRAM
     Route: 048
  5. GABAPENTIN [Concomitant]
     Active Substance: GABAPENTIN
     Indication: Product used for unknown indication
     Dosage: 25.5 GRAM
     Route: 048
  6. MORPHINE [Concomitant]
     Active Substance: MORPHINE
     Indication: Product used for unknown indication
     Route: 048

REACTIONS (19)
  - Acidosis [Fatal]
  - Acute hepatic failure [Fatal]
  - Acute kidney injury [Fatal]
  - Analgesic drug level increased [Fatal]
  - Brain oedema [Fatal]
  - Cerebral haemorrhage [Fatal]
  - Coagulopathy [Fatal]
  - Depressed level of consciousness [Fatal]
  - Diffuse axonal injury [Fatal]
  - Encephalopathy [Fatal]
  - Hypoglycaemia [Fatal]
  - Intentional overdose [Fatal]
  - Lactic acidosis [Fatal]
  - Metabolic acidosis [Fatal]
  - Toxicity to various agents [Fatal]
  - Endotracheal intubation [Fatal]
  - Haemodialysis [Fatal]
  - Ileus [Fatal]
  - Continuous haemodiafiltration [Fatal]
